FAERS Safety Report 25942979 (Version 1)
Quarter: 2025Q4

REPORT INFORMATION
  Report Type: Spontaneous
  Country: US (occurrence: None)
  Receive Date: 20251020
  Receipt Date: 20251020
  Transmission Date: 20260118
  Serious: Yes (Hospitalization)
  Sender: FDA-CTU
  Company Number: None

PATIENT
  Age: 66 Year
  Sex: Female
  Weight: 49.5 kg

DRUGS (8)
  1. COSENTYX [Suspect]
     Active Substance: SECUKINUMAB
     Indication: Ankylosing spondylitis
     Dosage: OTHER FREQUENCY : WEEKLY;?
     Route: 058
     Dates: start: 20251008, end: 20251008
  2. REPATHA [Concomitant]
     Active Substance: EVOLOCUMAB
  3. ASPIRIN [Concomitant]
     Active Substance: ASPIRIN
  4. VITAMINS [Concomitant]
     Active Substance: VITAMINS
  5. vitamin D2/K3 [Concomitant]
  6. LUTEIN [Concomitant]
     Active Substance: LUTEIN
  7. B12 [Concomitant]
  8. TRIFLUOPERAZINE HYDROCHLORIDE [Concomitant]
     Active Substance: TRIFLUOPERAZINE HYDROCHLORIDE

REACTIONS (3)
  - Urticaria [None]
  - Rash [None]
  - Mouth swelling [None]

NARRATIVE: CASE EVENT DATE: 20251011
